FAERS Safety Report 8106867-8 (Version None)
Quarter: 2012Q1

REPORT INFORMATION
  Report Type: 
  Country: None (occurrence: None)
  Receive Date: 20120202
  Receipt Date: 20120131
  Transmission Date: 20120608
  Serious: Yes (Death, Life-Threatening, Hospitalization, Disabling)
  Sender: FDA-Public Use
  Company Number: AU-B.I. PHARMACEUTICALS,INC./RIDGEFIELD-2011-AU-02057AU

PATIENT
  Sex: Male
  Weight: 105 kg

DRUGS (6)
  1. LASIX [Concomitant]
     Dosage: 40 MG
     Dates: start: 20110801
  2. PRADAXA [Suspect]
     Indication: ATRIAL FIBRILLATION
     Dosage: 220 MG
     Dates: start: 20110711
  3. RABEPRAZOLE SODIUM [Concomitant]
     Dosage: 20 MG
  4. MONOPRIL [Concomitant]
     Dosage: 20 MG
  5. OXYCONTIN [Concomitant]
     Dosage: 80 MG
     Dates: start: 20100101
  6. SOLONE [Concomitant]
     Dosage: 25 MG
     Dates: start: 20110708

REACTIONS (4)
  - ACUTE MYOCARDIAL INFARCTION [None]
  - METASTASES TO LIVER [None]
  - METASTASES TO LUNG [None]
  - METASTATIC NEOPLASM [None]
